FAERS Safety Report 23587122 (Version 1)
Quarter: 2024Q1

REPORT INFORMATION
  Report Type: Report from Study
  Country: US (occurrence: None)
  Receive Date: 20240301
  Receipt Date: 20240301
  Transmission Date: 20240410
  Serious: Yes (Other)
  Sender: FDA-Public Use
  Company Number: 2024A045380

PATIENT
  Sex: Male

DRUGS (1)
  1. LYNPARZA [Suspect]
     Active Substance: OLAPARIB
     Route: 048

REACTIONS (5)
  - Prostatic specific antigen increased [Unknown]
  - Drug ineffective [Unknown]
  - Product dose omission in error [Unknown]
  - Chest discomfort [Unknown]
  - Dyspnoea [Unknown]
